FAERS Safety Report 12382213 (Version 1)
Quarter: 2016Q2

REPORT INFORMATION
  Report Type: Other
  Country: US (occurrence: US)
  Receive Date: 20160518
  Receipt Date: 20160518
  Transmission Date: 20160815
  Serious: Yes (Other)
  Sender: FDA-Public Use
  Company Number: US-THE MENTHOLATUM COMPANY-1052415

PATIENT
  Age: 16 Year
  Sex: Female
  Weight: 86.36 kg

DRUGS (1)
  1. ROHTO ICE [Suspect]
     Active Substance: HYPROMELLOSES\TETRAHYDROZOLINE HYDROCHLORIDE\ZINC SULFATE
     Indication: EYE PRURITUS
     Route: 047
     Dates: start: 20160201, end: 20160504

REACTIONS (3)
  - Eye haemorrhage [Recovering/Resolving]
  - Eye swelling [Recovered/Resolved]
  - Vision blurred [Recovering/Resolving]

NARRATIVE: CASE EVENT DATE: 20160504
